FAERS Safety Report 10730515 (Version 1)
Quarter: 2015Q1

REPORT INFORMATION
  Report Type: Spontaneous
  Country: US (occurrence: US)
  Receive Date: 20150122
  Receipt Date: 20150122
  Transmission Date: 20150721
  Serious: Yes (Other)
  Sender: FDA-Public Use
  Company Number: US-BAYER-2015-004481

PATIENT
  Age: 56 Year
  Sex: Female

DRUGS (2)
  1. EOVIST [Suspect]
     Active Substance: GADOXETATE DISODIUM
     Indication: NUCLEAR MAGNETIC RESONANCE IMAGING LIVER
  2. EOVIST [Suspect]
     Active Substance: GADOXETATE DISODIUM
     Indication: METASTASES TO LIVER
     Dosage: UNK
     Route: 042

REACTIONS (5)
  - Pain in extremity [None]
  - Respiratory disorder [None]
  - Urticaria [None]
  - Hot flush [None]
  - Injection site extravasation [None]

NARRATIVE: CASE EVENT DATE: 20150108
